FAERS Safety Report 19882277 (Version 3)
Quarter: 2021Q4

REPORT INFORMATION
  Report Type: Spontaneous
  Country: CA (occurrence: CA)
  Receive Date: 20210924
  Receipt Date: 20211115
  Transmission Date: 20220303
  Serious: Yes (Other)
  Sender: FDA-Public Use
  Company Number: CA-PFIZER INC-2019486917

PATIENT
  Age: 59 Year
  Sex: Female
  Weight: 82.9 kg

DRUGS (5)
  1. XELJANZ [Suspect]
     Active Substance: TOFACITINIB CITRATE
     Indication: Rheumatoid arthritis
     Dosage: 5 MG, 2X/DAY
     Route: 048
     Dates: start: 20191218, end: 20211101
  2. NABUMETONE [Concomitant]
     Active Substance: NABUMETONE
     Dosage: UNK
  3. ORENCIA [Concomitant]
     Active Substance: ABATACEPT
     Dosage: UNK
     Route: 065
  4. PREDNISONE [Concomitant]
     Active Substance: PREDNISONE
     Indication: Rheumatoid arthritis
     Dosage: UNK
  5. RAMIPRIL [Concomitant]
     Active Substance: RAMIPRIL
     Indication: Blood pressure abnormal
     Dosage: 2.5 MG, DAILY
     Route: 065

REACTIONS (8)
  - Cataract [Unknown]
  - Drug ineffective [Unknown]
  - Arthropathy [Unknown]
  - Condition aggravated [Unknown]
  - Gait disturbance [Unknown]
  - Malaise [Unknown]
  - Memory impairment [Unknown]
  - Nerve injury [Unknown]
